FAERS Safety Report 7988908-1 (Version None)
Quarter: 2011Q4

REPORT INFORMATION
  Report Type: 
  Country: None (occurrence: None)
  Receive Date: 20111215
  Receipt Date: 20111215
  Transmission Date: 20120403
  Serious: Yes (Disabling, Other)
  Sender: FDA-Public Use
  Company Number: None

PATIENT
  Age: 69 Year
  Sex: Female
  Weight: 68.221 kg

DRUGS (3)
  1. KLONOPIN [Concomitant]
  2. PROVIGIL [Concomitant]
  3. AMBIEN [Suspect]
     Indication: SLEEP DISORDER
     Dosage: #30 10 MG 1 @ BEDTTIME YES 96 FILL LAST MONTH MY BRAINSHIPS ALL STAGES

REACTIONS (4)
  - PRODUCT PHYSICAL ISSUE [None]
  - TINNITUS [None]
  - EYE DISORDER [None]
  - SOMNOLENCE [None]
